FAERS Safety Report 12696811 (Version 1)
Quarter: 2016Q3

REPORT INFORMATION
  Report Type: Spontaneous
  Country: US (occurrence: US)
  Receive Date: 20160830
  Receipt Date: 20160830
  Transmission Date: 20161109
  Serious: No
  Sender: FDA-Public Use
  Company Number: US-BAYER-2016-162081

PATIENT
  Age: 15 Year
  Sex: Male
  Weight: 86.17 kg

DRUGS (1)
  1. ALEVE [Suspect]
     Active Substance: NAPROXEN SODIUM
     Indication: ANALGESIC THERAPY
     Dosage: 1-2 DF, PRN
     Route: 048

REACTIONS (2)
  - Oral discomfort [None]
  - Dysgeusia [None]
